FAERS Safety Report 12425138 (Version 1)
Quarter: 2016Q2

REPORT INFORMATION
  Report Type: Spontaneous
  Country: US (occurrence: US)
  Receive Date: 20160601
  Receipt Date: 20160601
  Transmission Date: 20160815
  Serious: No
  Sender: FDA-Public Use
  Company Number: US-MYLANLABS-2016M1009343

PATIENT
  Age: 42 Year
  Sex: Female

DRUGS (2)
  1. LIDOCAINE PATCH [Suspect]
     Active Substance: LIDOCAINE
     Indication: PAIN
     Dosage: 1/2 TO 1 PATCH, QD, 12 HOURS ON, 12 HOURS OFF
     Route: 003
     Dates: start: 20160226, end: 20160226
  2. LIDOCAINE PATCH [Suspect]
     Active Substance: LIDOCAINE
     Indication: OFF LABEL USE

REACTIONS (2)
  - Application site rash [Recovered/Resolved]
  - Application site papules [Recovered/Resolved]

NARRATIVE: CASE EVENT DATE: 20160226
